FAERS Safety Report 12393338 (Version 1)
Quarter: 2016Q2

REPORT INFORMATION
  Report Type: Report from Study
  Country: US (occurrence: US)
  Receive Date: 20160523
  Receipt Date: 20160523
  Transmission Date: 20160815
  Serious: Yes (Hospitalization)
  Sender: FDA-Public Use
  Company Number: US-BAYER-2016-079516

PATIENT
  Age: 83 Year
  Sex: Male

DRUGS (2)
  1. NEXAVAR [Suspect]
     Active Substance: SORAFENIB
     Indication: METASTASES TO BILIARY TRACT
     Dosage: 400 MG, BID
     Route: 048
     Dates: start: 20160413, end: 20160508
  2. NEXAVAR [Suspect]
     Active Substance: SORAFENIB
     Indication: HEPATIC CANCER

REACTIONS (3)
  - Muscular weakness [Not Recovered/Not Resolved]
  - Swelling [None]
  - Adverse drug reaction [None]

NARRATIVE: CASE EVENT DATE: 2016
